FAERS Safety Report 16893589 (Version 2)
Quarter: 2019Q4

REPORT INFORMATION
  Report Type: Spontaneous
  Country: FR (occurrence: FR)
  Receive Date: 20191008
  Receipt Date: 20191106
  Transmission Date: 20200122
  Serious: Yes (Other)
  Sender: FDA-Public Use
  Company Number: FR-OCTA-GENA02719FR

PATIENT
  Sex: Female

DRUGS (2)
  1. NUWIQ [Suspect]
     Active Substance: ANTIHEMOPHILIC FACTOR, HUMAN RECOMBINANT
     Indication: ACQUIRED VON WILLEBRAND^S DISEASE
     Route: 042
  2. HEMLIBRA [Concomitant]
     Active Substance: EMICIZUMAB-KXWH
     Indication: ACQUIRED VON WILLEBRAND^S DISEASE

REACTIONS (3)
  - Product preparation issue [Recovered/Resolved]
  - Drug administered in wrong device [Recovered/Resolved]
  - Off label use [Unknown]
